FAERS Safety Report 10190180 (Version 1)
Quarter: 2014Q2

REPORT INFORMATION
  Report Type: Spontaneous
  Country: US (occurrence: US)
  Receive Date: 20140522
  Receipt Date: 20140522
  Transmission Date: 20141212
  Serious: Yes (Death)
  Sender: FDA-Public Use
  Company Number: US-PFIZER INC-2014138611

PATIENT
  Age: 78 Year
  Sex: Male

DRUGS (4)
  1. BOSULIF [Suspect]
     Indication: CHRONIC MYELOID LEUKAEMIA
     Dosage: UNK
     Dates: start: 20140418
  2. CARVEDILOL [Concomitant]
     Dosage: UNK
  3. FOLIC ACID [Concomitant]
     Dosage: UNK
  4. ALPHA LIPOIC ACID [Concomitant]
     Dosage: UNK

REACTIONS (1)
  - Death [Fatal]
